FAERS Safety Report 15575041 (Version 1)
Quarter: 2018Q4

REPORT INFORMATION
  Report Type: Spontaneous
  Country: US (occurrence: US)
  Receive Date: 20181101
  Receipt Date: 20181101
  Transmission Date: 20190205
  Serious: Yes (Hospitalization, Disabling)
  Sender: FDA-Public Use
  Company Number: None

PATIENT
  Age: 60 Year
  Sex: Male

DRUGS (17)
  1. CHOLESTYRAM [Concomitant]
     Active Substance: CHOLESTYRAMINE
  2. MONTELUKAST [Concomitant]
     Active Substance: MONTELUKAST SODIUM
  3. PROAIR HFA [Concomitant]
     Active Substance: ALBUTEROL SULFATE
  4. CEFDINIR. [Concomitant]
     Active Substance: CEFDINIR
  5. FENOFIBRATE. [Concomitant]
     Active Substance: FENOFIBRATE
  6. IPRATROPIUM/SOL ALBUTER [Concomitant]
  7. SYMBICORT [Concomitant]
     Active Substance: BUDESONIDE\FORMOTEROL FUMARATE DIHYDRATE
  8. NYSTATIN. [Concomitant]
     Active Substance: NYSTATIN
  9. HUMIRA [Suspect]
     Active Substance: ADALIMUMAB
     Indication: RHEUMATOID ARTHRITIS
     Dosage: ?          OTHER FREQUENCY:QOW;?
     Route: 058
     Dates: start: 20180322
  10. AMLODIPINE [Concomitant]
     Active Substance: AMLODIPINE BESYLATE
  11. BROM/PSE/DM [Concomitant]
  12. RANITIDINE. [Concomitant]
     Active Substance: RANITIDINE
  13. METFORMIN [Concomitant]
     Active Substance: METFORMIN HYDROCHLORIDE
  14. ALLOPURINOL. [Concomitant]
     Active Substance: ALLOPURINOL
  15. AZITHROMYCIN ANHYDROUS. [Concomitant]
     Active Substance: AZITHROMYCIN ANHYDROUS
  16. LEFLUNOMIDE. [Concomitant]
     Active Substance: LEFLUNOMIDE
  17. PREDNISONE. [Concomitant]
     Active Substance: PREDNISONE

REACTIONS (1)
  - Product dose omission [None]

NARRATIVE: CASE EVENT DATE: 20181031
